FAERS Safety Report 12354187 (Version 1)
Quarter: 2016Q2

REPORT INFORMATION
  Report Type: Spontaneous
  Country: CZ (occurrence: CZ)
  Receive Date: 20160511
  Receipt Date: 20160511
  Transmission Date: 20160815
  Serious: Yes (Hospitalization)
  Sender: FDA-Public Use
  Company Number: CZ-CIPLA LTD.-2016CZ04875

PATIENT

DRUGS (15)
  1. CHLORTHALIDONE/AMILORIDE [Suspect]
     Active Substance: AMILORIDE HYDROCHLORIDE\CHLORTHALIDONE
     Dosage: 25 MG / 2.5 MG, BID
     Route: 065
  2. PERINDOPRIL [Suspect]
     Active Substance: PERINDOPRIL
     Dosage: 5 MG, BID
     Route: 065
  3. ATORVASTATIN [Suspect]
     Active Substance: ATORVASTATIN
     Dosage: 10 MG, 1/2 ONCE DAILY
     Route: 065
  4. FUROSEMIDE. [Suspect]
     Active Substance: FUROSEMIDE
     Dosage: 40 MG, QD
     Route: 065
  5. TIAPRIDE [Suspect]
     Active Substance: TIAPRIDE
     Dosage: 100 MG, QD
     Route: 065
  6. LEVOTHYROXINE. [Suspect]
     Active Substance: LEVOTHYROXINE
     Dosage: 75 MCG, QD
     Route: 065
  7. METAMIZOLE [Suspect]
     Active Substance: METAMIZOLE
     Dosage: 500 MG, TWO DOSES, THRICE DAILY
     Route: 065
  8. ISOSORBIDE DINITRATE. [Suspect]
     Active Substance: ISOSORBIDE DINITRATE
     Dosage: 20 MG, BID
     Route: 065
  9. TRAMADOL. [Suspect]
     Active Substance: TRAMADOL
     Dosage: 150 MG, BID
     Route: 065
  10. FENTANYL. [Suspect]
     Active Substance: FENTANYL
     Dosage: 25 MCG/H
     Route: 065
  11. ESCITALOPRAM [Suspect]
     Active Substance: ESCITALOPRAM OXALATE
     Dosage: 10 MG, QD
     Route: 065
  12. OMEPRAZOLE. [Suspect]
     Active Substance: OMEPRAZOLE
     Dosage: 20 MG, QD
     Route: 065
  13. BROMAZEPAM [Suspect]
     Active Substance: BROMAZEPAM
     Dosage: 3 MG, 1/2 ONCE DAILY
     Route: 065
  14. NITRENDIPINE [Suspect]
     Active Substance: NITRENDIPINE
     Dosage: 10 MG, QD
     Route: 065
  15. RIVAROXABAN [Suspect]
     Active Substance: RIVAROXABAN
     Dosage: 20 MG, QD
     Route: 065

REACTIONS (5)
  - Hyponatraemia [Unknown]
  - Syncope [Unknown]
  - Dehydration [Unknown]
  - Chest wall haematoma [Unknown]
  - Fall [Unknown]
